FAERS Safety Report 13139232 (Version 2)
Quarter: 2017Q1

REPORT INFORMATION
  Report Type: Spontaneous
  Country: IT (occurrence: IT)
  Receive Date: 20170123
  Receipt Date: 20170228
  Transmission Date: 20170428
  Serious: Yes (Other)
  Sender: FDA-Public Use
  Company Number: IT-PFIZER INC-2017025796

PATIENT
  Age: 70 Year
  Sex: Female

DRUGS (2)
  1. PACLITAXEL. [Concomitant]
     Active Substance: PACLITAXEL
     Dosage: UNK
  2. CARBOPLATIN. [Suspect]
     Active Substance: CARBOPLATIN
     Indication: OVARIAN CANCER
     Dosage: 480 MG, CYCLIC
     Route: 042
     Dates: start: 20141223, end: 20161027

REACTIONS (3)
  - Drug hypersensitivity [Recovered/Resolved]
  - Haemoptysis [Recovered/Resolved]
  - Post-tussive vomiting [Recovered/Resolved]

NARRATIVE: CASE EVENT DATE: 20160804
